FAERS Safety Report 10907693 (Version 1)
Quarter: 2015Q1

REPORT INFORMATION
  Report Type: Spontaneous
  Country: FR (occurrence: FR)
  Receive Date: 20150312
  Receipt Date: 20150312
  Transmission Date: 20150721
  Serious: Yes (Life-Threatening)
  Sender: FDA-Public Use
  Company Number: FR-SA-2015SA027873

PATIENT
  Age: 65 Year
  Sex: Female

DRUGS (16)
  1. INEXIUM [Concomitant]
     Active Substance: ESOMEPRAZOLE
  2. DOLIPRANE [Concomitant]
     Active Substance: ACETAMINOPHEN
  3. INEGY [Concomitant]
     Active Substance: EZETIMIBE\SIMVASTATIN
  4. ADENURIC [Concomitant]
     Active Substance: FEBUXOSTAT
  5. ANAFRANIL [Concomitant]
     Active Substance: CLOMIPRAMINE HYDROCHLORIDE
  6. MOVICOL [Concomitant]
     Active Substance: POLYETHYLENE GLYCOL 3350\POTASSIUM CHLORIDE\SODIUM BICARBONATE\SODIUM CHLORIDE
  7. EUPHON (ACONITUM NAPELLUS\CODEINE\SISYMBRIUM OFFICINALE WHOLE\SODIUM FORMATE) [Interacting]
     Active Substance: ACONITUM NAPELLUS\CODEINE\SISYMBRIUM OFFICINALE WHOLE\SODIUM FORMATE
     Route: 048
     Dates: start: 20150129, end: 20150130
  8. CELECTOL [Concomitant]
     Active Substance: CELIPROLOL HYDROCHLORIDE
  9. SEROPLEX [Concomitant]
     Active Substance: ESCITALOPRAM OXALATE
  10. ENZYMES NOS [Concomitant]
  11. LASILIX [Concomitant]
     Active Substance: FUROSEMIDE
  12. LYRICA [Concomitant]
     Active Substance: PREGABALIN
  13. DIFFU K [Concomitant]
     Active Substance: POTASSIUM CHLORIDE
  14. BI-PROFENID LP [Suspect]
     Active Substance: KETOPROFEN
     Route: 048
     Dates: start: 20150129, end: 20150130
  15. LASILIX SPECIAL [Interacting]
     Active Substance: FUROSEMIDE
     Route: 048
     Dates: end: 20150130
  16. LYSANXIA [Concomitant]
     Active Substance: PRAZEPAM

REACTIONS (5)
  - Urinary retention [Recovered/Resolved]
  - Bradypnoea [Recovered/Resolved]
  - Acute kidney injury [Recovered/Resolved]
  - Drug interaction [Recovered/Resolved]
  - Coma [Recovered/Resolved]

NARRATIVE: CASE EVENT DATE: 20150131
